FAERS Safety Report 9040933 (Version 1)
Quarter: 2013Q1

REPORT INFORMATION
  Report Type: Report from Study
  Country: US (occurrence: US)
  Receive Date: 20130129
  Receipt Date: 20130129
  Transmission Date: 20140127
  Serious: No
  Sender: FDA-Public Use
  Company Number: US-ABBOTT-12P-163-0902018-00

PATIENT
  Age: 44 Year
  Sex: Male

DRUGS (7)
  1. HUMIRA 40 MG/0.8 ML PEN [Suspect]
     Indication: CROHN^S DISEASE
     Dates: start: 20111212
  2. HUMIRA 40 MG/0.8 ML PEN [Suspect]
     Dates: start: 20120206
  3. CHOLESTYRAMINE [Concomitant]
     Indication: DIARRHOEA
     Dosage: 1 SCOOP 4 GMS
  4. LOSARTAN [Concomitant]
     Indication: HYPERTENSION
     Dosage: 50 MG DAILY
  5. OMEPRAZOLE [Concomitant]
     Indication: GASTROOESOPHAGEAL REFLUX DISEASE
  6. TYLENOL [Concomitant]
     Indication: PRODUCT USED FOR UNKNOWN INDICATION
  7. CLARITIN [Concomitant]
     Indication: PRODUCT USED FOR UNKNOWN INDICATION

REACTIONS (3)
  - Nasal congestion [Recovering/Resolving]
  - Sneezing [Recovering/Resolving]
  - Pyrexia [Recovering/Resolving]
